FAERS Safety Report 4531124-6 (Version None)
Quarter: 2004Q4

REPORT INFORMATION
  Report Type: 
  Country: None (occurrence: None)
  Receive Date: 20041130
  Receipt Date: 20040224
  Transmission Date: 20050328
  Serious: Yes (Disabling)
  Sender: FDA-Public Use
  Company Number: WAES 0402USA01772

PATIENT
  Age: 77 Year
  Sex: Male

DRUGS (4)
  1. FOSAMAX [Suspect]
     Dosage: 35 MG/WKY/PO
     Route: 048
     Dates: start: 20031201
  2. NAPROXEN [Concomitant]
  3. PREDNISONE [Concomitant]
  4. THEOPHYLLINE [Concomitant]

REACTIONS (1)
  - ARTHRALGIA [None]
